FAERS Safety Report 8808147 (Version 1)
Quarter: 2012Q4

REPORT INFORMATION
  Report Type: 
  Country: IT (occurrence: IT)
  Receive Date: 20120925
  Receipt Date: 20120925
  Transmission Date: 20130627
  Serious: Yes (Death)
  Sender: FDA-Public Use
  Company Number: IT-CELGENEUS-083-50794-12091563

PATIENT

DRUGS (1)
  1. VIDAZA [Suspect]
     Indication: DRUG USE FOR UNKNOWN INDICATION
     Route: 065

REACTIONS (7)
  - Haemorrhage [Fatal]
  - Myocardial infarction [Fatal]
  - Cachexia [Fatal]
  - Infection [Fatal]
  - Acute myeloid leukaemia [Fatal]
  - Adverse event [Unknown]
  - Disease progression [Unknown]
